FAERS Safety Report 5405678-1 (Version None)
Quarter: 2007Q3

REPORT INFORMATION
  Report Type: 
  Country: None (occurrence: None)
  Receive Date: 20070806
  Receipt Date: 20070730
  Transmission Date: 20080115
  Serious: Yes (Other)
  Sender: FDA-Public Use
  Company Number: PHBS2007GR11293

PATIENT
  Age: 20 Year
  Sex: Female

DRUGS (4)
  1. TRILEPTAL [Suspect]
     Indication: EPILEPSY
     Dosage: 300 MG/DAY
     Route: 048
  2. TRILEPTAL [Suspect]
     Dosage: 600 MG/DAY
     Route: 048
  3. TRILEPTAL [Suspect]
     Dosage: 900 MG/DAY
     Route: 048
  4. TRILEPTAL [Suspect]
     Dosage: 1200 MG/DAY
     Route: 048

REACTIONS (13)
  - ABNORMAL BEHAVIOUR [None]
  - AGITATION [None]
  - DEPRESSION [None]
  - DYSGRAPHIA [None]
  - FEAR [None]
  - HALLUCINATION [None]
  - HYPERTENSION [None]
  - MANIA [None]
  - PHOBIA [None]
  - SELF ESTEEM DECREASED [None]
  - SUICIDAL IDEATION [None]
  - SUSPICIOUSNESS [None]
  - TREMOR [None]
